FAERS Safety Report 4343708-9 (Version None)
Quarter: 2004Q2

REPORT INFORMATION
  Report Type: 
  Country: None (occurrence: None)
  Receive Date: 20040419
  Receipt Date: 20040406
  Transmission Date: 20050107
  Serious: Yes (Death)
  Sender: FDA-Public Use
  Company Number: HQWYE732427FEB03

PATIENT
  Age: 56 Year
  Sex: Male

DRUGS (3)
  1. DIMETAPP [Suspect]
     Dosage: ORAL
     Route: 048
  2. HALL'S MENTHO-LYPTUS *EUCALYPTUS OIL/MENTHOL) [Suspect]
     Dosage: ORAL
     Route: 048
  3. ROBITUSSIN CF (GUAIFENESIN/DEXTROMETHORPHAN/PHENYLPROPANOLAMINE) [Suspect]
     Dosage: ORAL
     Route: 048
     Dates: start: 19981201

REACTIONS (1)
  - CEREBROVASCULAR ACCIDENT [None]
